FAERS Safety Report 16720037 (Version 2)
Quarter: 2019Q4

REPORT INFORMATION
  Report Type: Spontaneous
  Country: BR (occurrence: BR)
  Receive Date: 20190820
  Receipt Date: 20191014
  Transmission Date: 20200122
  Serious: Yes (Life-Threatening, Other)
  Sender: FDA-Public Use
  Company Number: BR-PFIZER INC-2019354673

PATIENT
  Sex: Female
  Weight: 38 kg

DRUGS (1)
  1. LORAX (LORAZEPAM) [Suspect]
     Active Substance: LORAZEPAM
     Dosage: UNK

REACTIONS (7)
  - Fall [Unknown]
  - Dependence [Unknown]
  - Rib fracture [Unknown]
  - Decreased appetite [Unknown]
  - Loss of consciousness [Unknown]
  - Dizziness [Unknown]
  - Head injury [Unknown]
